FAERS Safety Report 20966381 (Version 1)
Quarter: 2022Q2

REPORT INFORMATION
  Report Type: Spontaneous
  Country: US (occurrence: None)
  Receive Date: 20220615
  Receipt Date: 20220615
  Transmission Date: 20220721
  Serious: Yes (Other)
  Sender: FDA-Public Use
  Company Number: None

PATIENT
  Age: 66 Year
  Sex: Female
  Weight: 103.5 kg

DRUGS (1)
  1. PYRIDOSTIGMINE BROMIDE [Suspect]
     Active Substance: PYRIDOSTIGMINE BROMIDE
     Indication: Myasthenia gravis
     Dates: start: 20220612, end: 20220612

REACTIONS (4)
  - Pain [None]
  - Back pain [None]
  - Limb discomfort [None]
  - Therapy cessation [None]

NARRATIVE: CASE EVENT DATE: 20220612
